FAERS Safety Report 8881089 (Version 1)
Quarter: 2012Q4

REPORT INFORMATION
  Report Type: 
  Country: BR (occurrence: BR)
  Receive Date: 20121031
  Receipt Date: 20121031
  Transmission Date: 20130627
  Serious: Yes (Other)
  Sender: FDA-Public Use
  Company Number: BR-ROCHE-1149783

PATIENT
  Age: 54 Year
  Sex: Male
  Weight: 93 kg

DRUGS (5)
  1. PEGASYS [Suspect]
     Indication: HEPATITIS C
     Route: 065
     Dates: start: 2006
  2. PEGASYS [Suspect]
     Route: 065
     Dates: start: 20120713
  3. RIBAVIRIN [Suspect]
     Indication: HEPATITIS C
     Route: 065
     Dates: start: 2006
  4. RIBAVIRIN [Suspect]
     Dosage: 5 tablet every day
     Route: 065
     Dates: start: 20120713
  5. VICTRELIS [Concomitant]
     Indication: HEPATITIS C
     Dosage: 12 capsule per day
     Route: 048
     Dates: start: 20120817

REACTIONS (4)
  - Drug ineffective [Unknown]
  - Rash [Recovering/Resolving]
  - Anaemia [Recovering/Resolving]
  - Vomiting [Recovered/Resolved]
